FAERS Safety Report 25784338 (Version 1)
Quarter: 2025Q3

REPORT INFORMATION
  Report Type: Spontaneous
  Country: US (occurrence: US)
  Receive Date: 20250910
  Receipt Date: 20250910
  Transmission Date: 20251020
  Serious: No
  Sender: HETERO
  Company Number: US-HETERO-HET2025US05204

PATIENT
  Age: 27 Year
  Sex: Female
  Weight: 133 kg

DRUGS (2)
  1. LEVOFLOXACIN [Suspect]
     Active Substance: LEVOFLOXACIN
     Indication: Urinary tract infection
     Route: 065
     Dates: start: 20250826, end: 20250827
  2. CIMETIDINE [Concomitant]
     Active Substance: CIMETIDINE
     Indication: Product used for unknown indication
     Route: 065

REACTIONS (1)
  - Ear disorder [Unknown]

NARRATIVE: CASE EVENT DATE: 20250826
